FAERS Safety Report 14654967 (Version 1)
Quarter: 2018Q1

REPORT INFORMATION
  Report Type: Spontaneous
  Country: US (occurrence: US)
  Receive Date: 20180319
  Receipt Date: 20180319
  Transmission Date: 20180509
  Serious: No
  Sender: FDA-Public Use
  Company Number: US-GLAXOSMITHKLINE-US2018044906

PATIENT
  Age: 83 Year
  Sex: Female

DRUGS (13)
  1. REQUIP XL [Suspect]
     Active Substance: ROPINIROLE HYDROCHLORIDE
     Indication: PARKINSONISM
     Dosage: 12 MG, QD
     Route: 048
     Dates: start: 2012
  2. ROPINIROLE TABLET [Concomitant]
     Active Substance: ROPINIROLE
  3. IRON SUPPLEMENT [Concomitant]
     Active Substance: IRON
  4. LOVASTATIN. [Concomitant]
     Active Substance: LOVASTATIN
  5. SINEMET [Concomitant]
     Active Substance: CARBIDOPA\LEVODOPA
  6. OMEPRAZOLE. [Concomitant]
     Active Substance: OMEPRAZOLE
  7. CITALOPRAM [Concomitant]
     Active Substance: CITALOPRAM HYDROBROMIDE
  8. VITAMIN D3 [Concomitant]
     Active Substance: CHOLECALCIFEROL
  9. COQ10 [Concomitant]
     Active Substance: UBIDECARENONE
  10. CHOLESTYRAMINE. [Concomitant]
     Active Substance: CHOLESTYRAMINE
  11. KEPPRA [Concomitant]
     Active Substance: LEVETIRACETAM
  12. GABAPENTIN. [Concomitant]
     Active Substance: GABAPENTIN
  13. PRIMIDONE. [Concomitant]
     Active Substance: PRIMIDONE

REACTIONS (4)
  - Logorrhoea [Unknown]
  - Gait disturbance [Unknown]
  - Tremor [Unknown]
  - Drug dose omission [Unknown]

NARRATIVE: CASE EVENT DATE: 20180310
